FAERS Safety Report 4984988-6 (Version None)
Quarter: 2006Q1

REPORT INFORMATION
  Report Type: 
  Country: None (occurrence: None)
  Receive Date: 20060309
  Receipt Date: 20050804
  Transmission Date: 20060701
  Serious: Yes (Other)
  Sender: FDA-Public Use
  Company Number: 413169

PATIENT
  Sex: 0

DRUGS (4)
  1. ACCUTANE [Suspect]
     Indication: ACNE CYSTIC
     Dosage: 20 MG DAILY ORAL
     Route: 048
     Dates: start: 20050610, end: 20050804
  2. ORTHO TRI-CYCLEN [Concomitant]
  3. ALBUTEROL [Concomitant]
  4. MONTELUKAST (MONTELUKAST) [Concomitant]

REACTIONS (3)
  - ABORTION [None]
  - ABORTION INDUCED [None]
  - NO ADVERSE EFFECT [None]
